FAERS Safety Report 4714368-X (Version None)
Quarter: 2005Q3

REPORT INFORMATION
  Report Type: 
  Country: None (occurrence: None)
  Receive Date: 20050714
  Receipt Date: 20050602
  Transmission Date: 20060218
  Serious: Yes (Hospitalization, Disabling)
  Sender: FDA-Public Use
  Company Number: US-ROCHE-406569

PATIENT
  Age: 72 Year
  Sex: Female
  Weight: 63.5 kg

DRUGS (11)
  1. IBANDRONIC ACID [Suspect]
     Indication: OSTEOPOROSIS POSTMENOPAUSAL
     Route: 048
     Dates: start: 20050223, end: 20050423
  2. ALENDRONIC ACID [Suspect]
     Indication: OSTEOPOROSIS POSTMENOPAUSAL
     Route: 048
     Dates: start: 20041130, end: 20050215
  3. NORVASC [Concomitant]
     Dates: start: 20040615
  4. LISINOPRIL [Concomitant]
     Dates: start: 20040615
  5. BUPROPION HCL [Concomitant]
     Dates: end: 20050315
  6. LEVAQUIN [Concomitant]
     Dates: start: 20050323, end: 20050328
  7. NACL [Concomitant]
     Dosage: REPORTED AS AN ^INFUSION.^
     Dates: start: 20050601
  8. ADVIL [Concomitant]
     Indication: OSTEOARTHRITIS
     Dosage: REPORTED THAT SEVERAL TABLETS REGULAR STRENGTH TAKEN PER DAY AS NEEDED MORE SINCE MARCH FLU.
  9. ALEVE [Concomitant]
     Indication: OSTEOARTHRITIS
     Dosage: REPORTED THAT SEVERAL TABLETS REGULAR STRENGTH TAKEN PER DAY AS NEEDED MORE SINCE MARCH FLU.
  10. PROTONIX [Concomitant]
     Dates: start: 20050530
  11. NSAIDS [Concomitant]
     Indication: OSTEOPOROSIS
     Dosage: 2-4 TABLETS AT A TIME TAKEN OVER APPROXIMATELY 1 YEAR PERIOD. STOPPED AT HOSPITALISATION.

REACTIONS (15)
  - ABDOMINAL PAIN [None]
  - ANOREXIA [None]
  - ASTHENIA [None]
  - BACK PAIN [None]
  - BLOOD PRESSURE SYSTOLIC INCREASED [None]
  - GLOMERULONEPHRITIS FOCAL [None]
  - INFLUENZA [None]
  - MUSCLE STRAIN [None]
  - MUSCULOSKELETAL DISCOMFORT [None]
  - NAUSEA [None]
  - RENAL CYST [None]
  - RENAL FAILURE [None]
  - RENAL INTERSTITIAL FIBROSIS [None]
  - VOMITING [None]
  - WEIGHT DECREASED [None]
